FAERS Safety Report 6256060-9 (Version None)
Quarter: 2009Q2

REPORT INFORMATION
  Report Type: 
  Country: None (occurrence: None)
  Receive Date: 20090630
  Receipt Date: 20090630
  Transmission Date: 20091009
  Serious: Yes (Hospitalization)
  Sender: FDA-Public Use
  Company Number: None

PATIENT
  Sex: Female
  Weight: 116.3 kg

DRUGS (29)
  1. ZOMETA [Suspect]
     Dosage: 4 MG
  2. VITAMIN D [Suspect]
     Dosage: 400 IU
  3. AROMASIN [Concomitant]
  4. BIOTIN [Concomitant]
  5. CALCIUM WITH MAGNESIUM [Concomitant]
  6. CHROMIUM PICCOLINATE [Concomitant]
  7. FISH OIL [Concomitant]
  8. GLUCOVANCE [Concomitant]
  9. GREEN TEA EXTRACT [Concomitant]
  10. IRON [Concomitant]
  11. KLONOPIN [Concomitant]
  12. LANTUS [Concomitant]
  13. LEXAPRO [Concomitant]
  14. LIBRIUM [Concomitant]
  15. MS CONTIN [Concomitant]
  16. MORPHINE SULFATE [Concomitant]
  17. MELATONIN [Concomitant]
  18. MELOXICAM [Concomitant]
  19. METAPROLOL [Concomitant]
  20. NAPROSYN [Concomitant]
  21. NEXIUM [Concomitant]
  22. NOVOLIN INSULIN [Concomitant]
  23. PREDNISONE TAB [Concomitant]
  24. REGLAN [Concomitant]
  25. SEROQUEL [Concomitant]
  26. VITAMIN B COMPLEX CAP [Concomitant]
  27. ASCORBIC ACID [Concomitant]
  28. VITAMIN D [Concomitant]
  29. WELLBUTRIN [Concomitant]

REACTIONS (4)
  - BRADYCARDIA [None]
  - DIZZINESS [None]
  - LOSS OF CONSCIOUSNESS [None]
  - SINUS ARREST [None]
